FAERS Safety Report 15584909 (Version 1)
Quarter: 2018Q4

REPORT INFORMATION
  Report Type: Spontaneous
  Country: US (occurrence: US)
  Receive Date: 20181105
  Receipt Date: 20181105
  Transmission Date: 20190205
  Serious: Yes (Hospitalization)
  Sender: FDA-Public Use
  Company Number: None

PATIENT
  Age: 57 Year
  Sex: Male
  Weight: 70.9 kg

DRUGS (7)
  1. OLANZAPINE. [Suspect]
     Active Substance: OLANZAPINE
     Indication: DEPRESSION
     Route: 048
     Dates: start: 20180801, end: 20181019
  2. TOPIRAMATE 25 MG BID [Concomitant]
  3. DIVALPROEX SODIUM 250 MG Q12H [Concomitant]
  4. ZONISAMIDE 100 MG BID [Concomitant]
  5. METFORMIN 500 MG BID [Concomitant]
  6. PROTONIX 40 MG DAILY [Concomitant]
  7. GABAPENTIN 300 MG BID [Concomitant]

REACTIONS (6)
  - Rhabdomyolysis [None]
  - Therapy change [None]
  - Asthenia [None]
  - Tremor [None]
  - Chest pain [None]
  - Fatigue [None]

NARRATIVE: CASE EVENT DATE: 20181023
